FAERS Safety Report 8960411 (Version 3)
Quarter: 2013Q3

REPORT INFORMATION
  Report Type: Spontaneous
  Country: US (occurrence: US)
  Receive Date: 20121212
  Receipt Date: 20130905
  Transmission Date: 20140515
  Serious: Yes (Hospitalization, Disabling)
  Sender: FDA-Public Use
  Company Number: US-BAYER-2012-129348

PATIENT
  Age: 32 Year
  Sex: Female
  Weight: 54.42 kg

DRUGS (8)
  1. YAZ [Suspect]
     Indication: CONTRACEPTION
     Dosage: UNK
     Dates: start: 200607, end: 201008
  2. YAZ [Suspect]
     Indication: MENSTRUAL CYCLE MANAGEMENT
     Dosage: UNK
     Dates: start: 2006, end: 201005
  3. YAZ [Suspect]
     Indication: CONTRACEPTION
     Dosage: UNK
     Dates: start: 2006, end: 201105
  4. GIANVI [Suspect]
     Indication: CONTRACEPTION
     Dosage: UNK
     Dates: start: 201009, end: 20110506
  5. GIANVI [Suspect]
     Indication: MENSTRUAL CYCLE MANAGEMENT
  6. VITAMIN C [Concomitant]
  7. IRON SUPPLEMENT [Concomitant]
     Indication: IRON DEFICIENCY ANAEMIA
  8. PERCOCET [Concomitant]
     Indication: PAIN MANAGEMENT
     Dosage: 1 TABLET EVERY 6 HOURS PRN
     Dates: start: 20110506

REACTIONS (10)
  - Pulmonary embolism [Recovered/Resolved]
  - Deep vein thrombosis [None]
  - Injury [Recovered/Resolved]
  - Pain [Recovered/Resolved]
  - Emotional distress [None]
  - Fear of death [None]
  - Nervousness [None]
  - Depression [None]
  - Dyspnoea [Recovered/Resolved]
  - Fatigue [Recovered/Resolved]
